FAERS Safety Report 24586765 (Version 2)
Quarter: 2024Q4

REPORT INFORMATION
  Report Type: Spontaneous
  Country: DE (occurrence: DE)
  Receive Date: 20241107
  Receipt Date: 20241210
  Transmission Date: 20250115
  Serious: Yes (Other)
  Sender: Unknown Manufacturer
  Company Number: DE-STALCOR-2024-AER-02484

PATIENT
  Sex: Male

DRUGS (1)
  1. ORALAIR [Suspect]
     Active Substance: ANTHOXANTHUM ODORATUM POLLEN\DACTYLIS GLOMERATA POLLEN\LOLIUM PERENNE POLLEN\PHLEUM PRATENSE POLLEN\
     Indication: Product used for unknown indication
     Route: 060

REACTIONS (2)
  - Rheumatoid arthritis [Unknown]
  - Contraindicated product administered [Unknown]
